FAERS Safety Report 9718977 (Version 5)
Quarter: 2015Q2

REPORT INFORMATION
  Report Type: Spontaneous
  Country: US (occurrence: US)
  Receive Date: 20131127
  Receipt Date: 20150610
  Transmission Date: 20150821
  Serious: Yes (Hospitalization, Disabling, Other)
  Sender: FDA-Public Use
  Company Number: US-009507513-1311USA011929

PATIENT
  Sex: Male
  Weight: 95.24 kg

DRUGS (2)
  1. BYETTA [Suspect]
     Active Substance: EXENATIDE
     Indication: TYPE 2 DIABETES MELLITUS
     Dosage: UNK, QD
     Route: 048
     Dates: start: 2007, end: 2008
  2. JANUVIA [Suspect]
     Active Substance: SITAGLIPTIN PHOSPHATE
     Indication: TYPE 2 DIABETES MELLITUS
     Dosage: 100 MG, QD
     Route: 048
     Dates: start: 20070129, end: 200810

REACTIONS (13)
  - Cholecystitis chronic [Recovered/Resolved]
  - Pancreatic carcinoma metastatic [Not Recovered/Not Resolved]
  - Appendicectomy [Unknown]
  - Hyperlipidaemia [Unknown]
  - Hypertension [Unknown]
  - Prothrombin time prolonged [Unknown]
  - Hepatic cyst [Unknown]
  - Renal cyst [Unknown]
  - Metastases to lymph nodes [Unknown]
  - Pancreaticoduodenectomy [Unknown]
  - Cholecystectomy [Unknown]
  - Adenotonsillectomy [Unknown]
  - International normalised ratio increased [Unknown]

NARRATIVE: CASE EVENT DATE: 200810
